FAERS Safety Report 21128561 (Version 1)
Quarter: 2022Q3

REPORT INFORMATION
  Report Type: Spontaneous
  Country: AU (occurrence: AU)
  Receive Date: 20220725
  Receipt Date: 20220725
  Transmission Date: 20221026
  Serious: No
  Sender: FDA-Public Use
  Company Number: AU-009507513-2207AUS005696

PATIENT
  Age: 63 Year
  Sex: Female

DRUGS (3)
  1. LAGEVRIO [Suspect]
     Active Substance: MOLNUPIRAVIR
     Indication: COVID-19 treatment
     Dosage: UNK
     Route: 048
  2. LAGEVRIO [Suspect]
     Active Substance: MOLNUPIRAVIR
     Dosage: SHE TOOK 4 CAPSULES AT 7 PM LAST NIGHT, 2 CAPSULES AND 2 CAPSULES WITH WATER
     Route: 048
     Dates: start: 20220718, end: 20220718
  3. LAGEVRIO [Suspect]
     Active Substance: MOLNUPIRAVIR
     Dosage: INADVERTENTLY TOOK 6 CAPSULES AT 8 AM IN THE MORNING
     Route: 048
     Dates: start: 20220719, end: 20220719

REACTIONS (3)
  - Abdominal pain [Unknown]
  - Discomfort [Unknown]
  - Accidental overdose [Unknown]

NARRATIVE: CASE EVENT DATE: 20220719
